FAERS Safety Report 10067660 (Version 1)
Quarter: 2014Q2

REPORT INFORMATION
  Report Type: Spontaneous
  Country: US (occurrence: None)
  Receive Date: 20140408
  Receipt Date: 20140408
  Transmission Date: 20141212
  Serious: Yes (Hospitalization)
  Sender: FDA-Public Use
  Company Number: None

PATIENT
  Age: 57 Year
  Sex: Male
  Weight: 67 kg

DRUGS (2)
  1. MORPHINE [Suspect]
     Indication: PAIN
     Route: 048
     Dates: start: 20140102, end: 20140303
  2. ZOLPIDEM [Suspect]
     Indication: PAIN
     Dosage: AT BEDTIME
     Route: 048
     Dates: start: 20121016, end: 20140303

REACTIONS (8)
  - Dyskinesia [None]
  - Muscular weakness [None]
  - Fall [None]
  - Decreased appetite [None]
  - Somnolence [None]
  - Vision blurred [None]
  - Confusional state [None]
  - Sedation [None]
